FAERS Safety Report 6006590-X (Version None)
Quarter: 2008Q4

REPORT INFORMATION
  Report Type: 
  Country: None (occurrence: None)
  Receive Date: 20081217
  Receipt Date: 20081208
  Transmission Date: 20090506
  Serious: Yes (Hospitalization)
  Sender: FDA-Public Use
  Company Number: ZA-ROCHE-595248

PATIENT
  Age: 38 Year
  Sex: Female

DRUGS (3)
  1. KYTRIL [Suspect]
     Route: 042
     Dates: start: 20081001, end: 20081001
  2. KYTRIL [Suspect]
     Dosage: STRENGTH: 1 MG/ML
     Route: 042
     Dates: start: 20081022, end: 20081022
  3. EFFORTIL [Concomitant]
     Indication: HYPOTENSION

REACTIONS (2)
  - CONVULSION [None]
  - STATUS EPILEPTICUS [None]
